FAERS Safety Report 12761227 (Version 2)
Quarter: 2018Q1

REPORT INFORMATION
  Report Type: Spontaneous
  Country: US (occurrence: US)
  Receive Date: 20160920
  Receipt Date: 20180323
  Transmission Date: 20180508
  Serious: No
  Sender: FDA-Public Use
  Company Number: US-AUROBINDO-AUR-APL-2016-00612

PATIENT
  Sex: Female
  Weight: 70.31 kg

DRUGS (6)
  1. PAROXETINE 10MG [Suspect]
     Active Substance: PAROXETINE HYDROCHLORIDE
     Dosage: 20 MG, UNK
     Route: 065
     Dates: start: 20100128, end: 20141201
  2. PAROXETINE 10MG [Suspect]
     Active Substance: PAROXETINE HYDROCHLORIDE
     Indication: PRODUCT USED FOR UNKNOWN INDICATION
     Dosage: 10 MG, UNK
     Route: 065
  3. CYMBALTA [Suspect]
     Active Substance: DULOXETINE HYDROCHLORIDE
     Indication: PRODUCT USED FOR UNKNOWN INDICATION
  4. PRISTIQ EXTENDED-RELEASE [Suspect]
     Active Substance: DESVENLAFAXINE SUCCINATE
     Indication: PRODUCT USED FOR UNKNOWN INDICATION
  5. NORTRIPTYLINE [Suspect]
     Active Substance: NORTRIPTYLINE
     Indication: PRODUCT USED FOR UNKNOWN INDICATION
     Route: 065
  6. FLUOXETINE [Suspect]
     Active Substance: FLUOXETINE HYDROCHLORIDE
     Indication: PRODUCT USED FOR UNKNOWN INDICATION
     Route: 065

REACTIONS (1)
  - Drug ineffective [Unknown]
